FAERS Safety Report 5299178-X (Version None)
Quarter: 2007Q2

REPORT INFORMATION
  Report Type: 
  Country: None (occurrence: None)
  Receive Date: 20070417
  Receipt Date: 20070412
  Transmission Date: 20071010
  Serious: Yes (Hospitalization)
  Sender: FDA-Public Use
  Company Number: BE-AVENTIS-200622716GDDC

PATIENT
  Age: 15 Day
  Sex: Male

DRUGS (3)
  1. LANTUS [Suspect]
     Route: 063
     Dates: start: 20061210
  2. PROPRANOLOL [Concomitant]
     Route: 048
     Dates: start: 20041201
  3. ADALAT [Concomitant]
     Dosage: DOSE QUANTITY: 1

REACTIONS (3)
  - DRUG EXPOSURE VIA BREAST MILK [None]
  - HAEMATOCHEZIA [None]
  - NECROTISING COLITIS [None]
